FAERS Safety Report 16963348 (Version 1)
Quarter: 2019Q4

REPORT INFORMATION
  Report Type: Report from Study
  Country: US (occurrence: US)
  Receive Date: 20191025
  Receipt Date: 20191025
  Transmission Date: 20200122
  Serious: Yes (Death, Hospitalization, Other)
  Sender: FDA-Public Use
  Company Number: US-PFIZER INC-2019298546

PATIENT
  Age: 63 Year
  Sex: Male

DRUGS (2)
  1. SUTENT [Suspect]
     Active Substance: SUNITINIB MALATE
     Indication: RENAL CELL CARCINOMA
     Dosage: 50 MG, CYCLIC (ONCE DAILY, 14 DAYS/2 WEEKS ON, 7 DAYS/1 WEEK OFF)
     Route: 048
     Dates: start: 20190628, end: 20190925
  2. SUTENT [Suspect]
     Active Substance: SUNITINIB MALATE
     Dosage: 50 MG, CYCLIC (WEEKS ON, 1 WEEK OFF)
     Route: 048
     Dates: start: 20190628

REACTIONS (15)
  - Dyspnoea [Recovered/Resolved]
  - Asthenia [Not Recovered/Not Resolved]
  - Kidney infection [Recovered/Resolved]
  - Chills [Recovered/Resolved]
  - Anaemia [Recovered/Resolved]
  - Paraesthesia [Recovered/Resolved]
  - Taste disorder [Unknown]
  - Decubitus ulcer [Unknown]
  - Pyrexia [Recovered/Resolved]
  - Nausea [Unknown]
  - Dyspepsia [Recovered/Resolved]
  - Oral pain [Recovering/Resolving]
  - Diarrhoea [Recovering/Resolving]
  - Death [Fatal]
  - Fatigue [Recovering/Resolving]

NARRATIVE: CASE EVENT DATE: 20190823
